FAERS Safety Report 8966612 (Version 3)
Quarter: 2013Q1

REPORT INFORMATION
  Report Type: Spontaneous
  Country: US (occurrence: US)
  Receive Date: 20121214
  Receipt Date: 20130129
  Transmission Date: 20140127
  Serious: No
  Sender: FDA-Public Use
  Company Number: US-ASTRAZENECA-2012SE92491

PATIENT
  Age: 70 Year
  Sex: Female
  Weight: 99.8 kg

DRUGS (1)
  1. SYMBICORT PMDI [Suspect]
     Indication: ASTHMA
     Dosage: 80/4.5 MCG, ONE PUFF TWO TIMES A DAY
     Route: 055
     Dates: start: 201210

REACTIONS (3)
  - Chest discomfort [Unknown]
  - Cough [Unknown]
  - Drug dose omission [Unknown]
